FAERS Safety Report 18453834 (Version 1)
Quarter: 2020Q4

REPORT INFORMATION
  Report Type: Spontaneous
  Country: MX (occurrence: MX)
  Receive Date: 20201102
  Receipt Date: 20201102
  Transmission Date: 20210114
  Serious: Yes (Other)
  Sender: FDA-Public Use
  Company Number: MX-PFIZER INC-2020421887

PATIENT
  Age: 56 Year
  Sex: Female

DRUGS (1)
  1. EXEMESTANE. [Suspect]
     Active Substance: EXEMESTANE
     Indication: INVASIVE DUCTAL BREAST CARCINOMA

REACTIONS (11)
  - Hypokinesia [Unknown]
  - Oxygen saturation decreased [Unknown]
  - Lymphoedema [Unknown]
  - Neoplasm progression [Unknown]
  - Pain [Not Recovered/Not Resolved]
  - Erythema [Unknown]
  - Vertebral lesion [Unknown]
  - Pain in extremity [Not Recovered/Not Resolved]
  - Spinal disorder [Unknown]
  - Mastitis [Unknown]
  - Tissue injury [Unknown]

NARRATIVE: CASE EVENT DATE: 20191024
